FAERS Safety Report 9983387 (Version 2)
Quarter: 2014Q2

REPORT INFORMATION
  Report Type: Spontaneous
  Country: SE (occurrence: SE)
  Receive Date: 20140307
  Receipt Date: 20140409
  Transmission Date: 20141212
  Serious: Yes (Life-Threatening, Hospitalization, Disabling, Other)
  Sender: FDA-Public Use
  Company Number: PHHY2014SE027814

PATIENT
  Age: 65 Year
  Sex: Female
  Weight: 42 kg

DRUGS (4)
  1. SANDIMMUN NEORAL / OL [Suspect]
     Indication: HEART TRANSPLANT
     Dosage: 100 MG/ML, (0.6MLX2)
     Route: 048
  2. AZATIOPRIN [Concomitant]
     Indication: HEART TRANSPLANT
     Dosage: 100 MG, UNK
     Route: 062
  3. PREDNISOLONE [Concomitant]
     Dosage: 10 MG, UNK
     Route: 062
  4. KLEXANE [Concomitant]
     Indication: IMMOBILE
     Dosage: 100 MG/ML, (0.4MLX1)
     Dates: start: 20140129

REACTIONS (14)
  - Ischaemic stroke [Not Recovered/Not Resolved]
  - Aphasia [Unknown]
  - Sensory loss [Unknown]
  - Loss of consciousness [Unknown]
  - Motor dysfunction [Unknown]
  - Gait disturbance [Unknown]
  - Dysphagia [Unknown]
  - Disorientation [Unknown]
  - Balance disorder [Unknown]
  - Coordination abnormal [Unknown]
  - Meningitis [Recovered/Resolved]
  - Fall [Unknown]
  - Multi-organ failure [Unknown]
  - Sepsis [Unknown]
